FAERS Safety Report 8946995 (Version 2)
Quarter: 2013Q1

REPORT INFORMATION
  Report Type: Spontaneous
  Country: DE (occurrence: DE)
  Receive Date: 20121205
  Receipt Date: 20130104
  Transmission Date: 20140127
  Serious: Yes (Hospitalization)
  Sender: FDA-Public Use
  Company Number: DE-ELI_LILLY_AND_COMPANY-DE201211007390

PATIENT
  Sex: Female

DRUGS (6)
  1. BYDUREON [Suspect]
     Indication: TYPE 2 DIABETES MELLITUS
     Dosage: 2 MG, WEEKLY (1/W)
     Route: 058
     Dates: start: 2012
  2. CANDESARTAN [Concomitant]
     Dosage: UNK, QD
  3. METFORMIN [Concomitant]
     Dosage: 850 DF, BID
  4. PANTOPRAZOL [Concomitant]
     Dosage: 40 DF, QD
  5. ATMADISC [Concomitant]
     Dosage: 1 DF, BID
  6. SALBULAIR [Concomitant]
     Dosage: UNK, PRN

REACTIONS (3)
  - Hypoaesthesia [Recovered/Resolved]
  - Blood glucose increased [Recovered/Resolved]
  - Hyperventilation [Recovered/Resolved]
